FAERS Safety Report 8351748-8 (Version None)
Quarter: 2012Q2

REPORT INFORMATION
  Report Type: 
  Country: None (occurrence: None)
  Receive Date: 20120511
  Receipt Date: 20120503
  Transmission Date: 20120825
  Serious: No
  Sender: FDA-Public Use
  Company Number: US-BIOGENIDEC-2012BI015867

PATIENT
  Age: 23 Year
  Sex: Male

DRUGS (2)
  1. TYSABRI [Suspect]
     Indication: MULTIPLE SCLEROSIS
     Route: 042
     Dates: start: 20100921, end: 20120409
  2. RITUXAN [Concomitant]
     Dates: start: 20120427

REACTIONS (5)
  - MULTIPLE SCLEROSIS [None]
  - HYPOPHAGIA [None]
  - HYPERSOMNIA [None]
  - ABNORMAL FAECES [None]
  - MULTIPLE SCLEROSIS RELAPSE [None]
